FAERS Safety Report 9441535 (Version 1)
Quarter: 2013Q3

REPORT INFORMATION
  Report Type: Spontaneous
  Country: US (occurrence: US)
  Receive Date: 20130805
  Receipt Date: 20130805
  Transmission Date: 20140515
  Serious: Yes (Other)
  Sender: FDA-Public Use
  Company Number: US-UCBSA-093458

PATIENT
  Sex: Male

DRUGS (7)
  1. KEPPRA [Suspect]
     Dosage: 3000 MG
  2. LAMOTRIGINE [Suspect]
     Dosage: UNKNOWN DOSE
  3. VITAMIN D [Concomitant]
     Indication: SUPPLEMENTATION THERAPY
     Dosage: UNKNOWN DOSE
  4. MAGNESIUM [Concomitant]
     Indication: SUPPLEMENTATION THERAPY
     Dosage: UNKNOWN DOSE
  5. MULTIVITAMIN [Concomitant]
     Indication: SUPPLEMENTATION THERAPY
     Dosage: UNKNOWN DOSE
  6. B VITAMINS [Concomitant]
     Indication: SUPPLEMENTATION THERAPY
     Dosage: UNKNOWN DOSE
  7. 5HTP [Concomitant]
     Indication: SUPPLEMENTATION THERAPY
     Dosage: UNKNOWN DOSE

REACTIONS (4)
  - Grand mal convulsion [Recovered/Resolved]
  - Partial seizures [Recovered/Resolved]
  - Rash [Unknown]
  - Drug ineffective [Unknown]
